FAERS Safety Report 16537979 (Version 2)
Quarter: 2019Q3

REPORT INFORMATION
  Report Type: Spontaneous
  Country: US (occurrence: US)
  Receive Date: 20190708
  Receipt Date: 20190731
  Transmission Date: 20191004
  Serious: No
  Sender: FDA-Public Use
  Company Number: US-SA-2019SA173721

PATIENT
  Age: 60 Year
  Sex: Male

DRUGS (1)
  1. CLEXANE [Suspect]
     Active Substance: ENOXAPARIN SODIUM
     Indication: THROMBOSIS
     Dosage: 100 MG, BID
     Dates: start: 201808

REACTIONS (2)
  - Injection site bruising [Not Recovered/Not Resolved]
  - Needle issue [Not Recovered/Not Resolved]
